FAERS Safety Report 13600231 (Version 1)
Quarter: 2017Q2

REPORT INFORMATION
  Report Type: Report from Study
  Country: DE (occurrence: DE)
  Receive Date: 20170601
  Receipt Date: 20170601
  Transmission Date: 20170830
  Serious: Yes (Hospitalization)
  Sender: FDA-Public Use
  Company Number: DE-ROCHE-1941568

PATIENT
  Age: 43 Year
  Sex: Male
  Weight: 73.2 kg

DRUGS (10)
  1. MYCOPHENOLATE MOFETIL. [Suspect]
     Active Substance: MYCOPHENOLATE MOFETIL
     Indication: RENAL TRANSPLANT
     Dosage: DOSE: 750-0-750; MOST RECENT DOSE: 21/JAN/2016
     Route: 065
     Dates: start: 20151019
  2. PROGRAF [Suspect]
     Active Substance: TACROLIMUS\TACROLIMUS ANHYDROUS
     Indication: RENAL TRANSPLANT
     Dosage: DOSE: 1.5-0-1 MG; MOST RECENT DOSE: 21/JAN/2016
     Route: 065
     Dates: start: 20151019
  3. PREDNISONE. [Suspect]
     Active Substance: PREDNISONE
     Indication: RENAL TRANSPLANT
     Route: 065
     Dates: start: 20151020
  4. ADVAGRAF [Concomitant]
     Active Substance: TACROLIMUS
     Route: 065
     Dates: start: 20160829
  5. CONCOR [Concomitant]
     Active Substance: BISOPROLOL FUMARATE
     Route: 065
     Dates: start: 201510, end: 20160121
  6. ALLOPURINOL. [Concomitant]
     Active Substance: ALLOPURINOL
     Route: 065
     Dates: start: 20160114, end: 20160121
  7. CERTICAN [Concomitant]
     Active Substance: EVEROLIMUS
     Route: 065
     Dates: start: 20160126
  8. PANTOZOL [Concomitant]
     Active Substance: PANTOPRAZOLE SODIUM
     Route: 065
     Dates: start: 201510, end: 20160121
  9. COTRIM FORTE [Concomitant]
     Active Substance: SULFAMETHOXAZOLE\TRIMETHOPRIM
     Route: 065
     Dates: start: 201510, end: 20160121
  10. CERTICAN [Concomitant]
     Active Substance: EVEROLIMUS
     Route: 065

REACTIONS (2)
  - Complications of transplanted kidney [Recovered/Resolved]
  - Polyomavirus-associated nephropathy [Recovered/Resolved]

NARRATIVE: CASE EVENT DATE: 20151202
